FAERS Safety Report 7404570-0 (Version None)
Quarter: 2011Q2

REPORT INFORMATION
  Report Type: 
  Country: None (occurrence: None)
  Receive Date: 20110411
  Receipt Date: 20110401
  Transmission Date: 20111010
  Serious: Yes (Hospitalization)
  Sender: FDA-Public Use
  Company Number: US-BIOGENIDEC-2010BI019986

PATIENT
  Age: 29 Year
  Sex: Female

DRUGS (13)
  1. TYSABRI [Suspect]
     Route: 042
     Dates: start: 20050204, end: 20050201
  2. CRANBERRY SUPPLEMENT [Concomitant]
  3. LABETALOL [Concomitant]
     Route: 048
  4. TYSABRI [Suspect]
     Indication: MULTIPLE SCLEROSIS
     Route: 042
     Dates: start: 20081218, end: 20100329
  5. ASCORBIC ACID [Concomitant]
     Route: 048
  6. PRENATAL PLUS [Concomitant]
     Dates: start: 20100501
  7. VITAMIN D [Concomitant]
  8. CALCIUM [Concomitant]
  9. CELEXA [Concomitant]
     Route: 048
  10. PHENERGAN HCL [Concomitant]
     Dates: start: 20100701
  11. DEMEROL [Concomitant]
     Dates: start: 20100801
  12. IBUPROFEN [Concomitant]
  13. ZANAFLEX [Concomitant]
     Route: 048

REACTIONS (3)
  - TRANSVERSE PRESENTATION [None]
  - COMPLICATION OF DELIVERY [None]
  - PREGNANCY [None]
